FAERS Safety Report 9189755 (Version 1)
Quarter: 2013Q1

REPORT INFORMATION
  Report Type: Spontaneous
  Country: US (occurrence: None)
  Receive Date: 20130322
  Receipt Date: 20130322
  Transmission Date: 20140127
  Serious: Yes (Other)
  Sender: FDA-Public Use
  Company Number: None

PATIENT
  Age: 45 Year
  Sex: Female
  Weight: 68.04 kg

DRUGS (1)
  1. BOTOX COSMETIC [Suspect]

REACTIONS (10)
  - Swelling face [None]
  - Burning sensation [None]
  - Heart rate increased [None]
  - Urticaria [None]
  - Dyspnoea [None]
  - Anxiety [None]
  - Influenza like illness [None]
  - Muscular weakness [None]
  - Vision blurred [None]
  - Fatigue [None]
